FAERS Safety Report 4751205-1 (Version None)
Quarter: 2005Q3

REPORT INFORMATION
  Report Type: 
  Country: None (occurrence: None)
  Receive Date: 20050823
  Receipt Date: 20050823
  Transmission Date: 20060218
  Serious: Yes (Life-Threatening, Hospitalization)
  Sender: FDA-Public Use
  Company Number: None

PATIENT
  Age: 52 Year
  Sex: Female
  Weight: 48.9885 kg

DRUGS (1)
  1. TRILEPTAL [Suspect]
     Indication: BIPOLAR DISORDER
     Dosage: 225 BID ORAL
     Route: 048
     Dates: start: 20050701, end: 20050801

REACTIONS (9)
  - BALANCE DISORDER [None]
  - COGNITIVE DISORDER [None]
  - CONFUSIONAL STATE [None]
  - DIZZINESS [None]
  - HEART RATE DECREASED [None]
  - HYPONATRAEMIA [None]
  - HYPOTENSION [None]
  - NEPHROPATHY TOXIC [None]
  - SOMNOLENCE [None]
